FAERS Safety Report 4974522-9 (Version None)
Quarter: 2006Q2

REPORT INFORMATION
  Report Type: 
  Country: None (occurrence: None)
  Receive Date: 20060410
  Receipt Date: 20060327
  Transmission Date: 20061013
  Serious: Yes (Hospitalization)
  Sender: FDA-Public Use
  Company Number: 2006027378

PATIENT
  Age: 50 Year
  Sex: Female
  Weight: 68.5 kg

DRUGS (5)
  1. EPIRUBICIN [Suspect]
     Indication: ILL-DEFINED DISORDER
     Dosage: 150 MG
     Dates: start: 20050203
  2. DOCETAXEL (DOCETAXEL) [Suspect]
     Indication: ILL-DEFINED DISORDER
     Dosage: 130 MG
     Dates: start: 20051129, end: 20060202
  3. DIAZEPAM [Concomitant]
  4. BETAMETHASONE [Concomitant]
  5. LASIX [Concomitant]

REACTIONS (5)
  - CONFUSIONAL STATE [None]
  - EMOTIONAL DISTRESS [None]
  - PALPITATIONS [None]
  - RESTLESSNESS [None]
  - SPEECH DISORDER [None]
